FAERS Safety Report 20667474 (Version 5)
Quarter: 2022Q4

REPORT INFORMATION
  Report Type: Report from Study
  Country: GB (occurrence: GB)
  Receive Date: 20220404
  Receipt Date: 20221123
  Transmission Date: 20230113
  Serious: Yes (Hospitalization)
  Sender: FDA-Public Use
  Company Number: GB-BRISTOL-MYERS SQUIBB COMPANY-BMS-2021-144787

PATIENT
  Sex: Female
  Weight: 64.40 kg

DRUGS (2)
  1. REGORAFENIB [Suspect]
     Active Substance: REGORAFENIB
     Indication: Oesophageal squamous cell carcinoma stage II
     Dosage: MOST RECENT DOSE (60 MG) RECEIVED ON 08-AUG-2022. ?DRUG INTERRUPTED
     Route: 048
     Dates: start: 20210809
  2. REGORAFENIB [Suspect]
     Active Substance: REGORAFENIB
     Route: 048
     Dates: start: 20210906

REACTIONS (1)
  - Infection [Recovered/Resolved]

NARRATIVE: CASE EVENT DATE: 20210819
